FAERS Safety Report 26061729 (Version 1)
Quarter: 2025Q4

REPORT INFORMATION
  Report Type: Report from Study
  Country: US (occurrence: US)
  Receive Date: 20251118
  Receipt Date: 20251118
  Transmission Date: 20260117
  Serious: Yes (Other)
  Sender: ABBVIE
  Company Number: US-ABBVIE-6553966

PATIENT
  Sex: Male

DRUGS (1)
  1. MAVYRET [Suspect]
     Active Substance: GLECAPREVIR\PIBRENTASVIR
     Indication: Antiviral prophylaxis
     Route: 048
     Dates: start: 1986

REACTIONS (5)
  - Transfusion [Unknown]
  - Pancreatectomy [Unknown]
  - Immune system disorder [Unknown]
  - Chemotherapy [Unknown]
  - Off label use [Unknown]
